FAERS Safety Report 7420894-5 (Version None)
Quarter: 2011Q2

REPORT INFORMATION
  Report Type: 
  Country: None (occurrence: None)
  Receive Date: 20110418
  Receipt Date: 20110406
  Transmission Date: 20111010
  Serious: Yes (Other)
  Sender: FDA-Public Use
  Company Number: A0922712A

PATIENT
  Sex: Female

DRUGS (3)
  1. KIVEXA [Suspect]
     Indication: HIV INFECTION
     Route: 048
     Dates: start: 20110324, end: 20110407
  2. KALETRA [Concomitant]
     Indication: HIV INFECTION
     Dates: start: 20110404, end: 20110407
  3. ATAZANAVIR [Concomitant]
     Indication: HIV INFECTION
     Dates: start: 20110324, end: 20110404

REACTIONS (12)
  - HEADACHE [None]
  - RASH [None]
  - CONJUNCTIVITIS INFECTIVE [None]
  - RASH MACULAR [None]
  - CONJUNCTIVITIS [None]
  - ABDOMINAL PAIN [None]
  - ARTHRALGIA [None]
  - DRUG HYPERSENSITIVITY [None]
  - ODYNOPHAGIA [None]
  - HYPERBILIRUBINAEMIA [None]
  - PYREXIA [None]
  - NAUSEA [None]
